FAERS Safety Report 4263645-8 (Version None)
Quarter: 2004Q1

REPORT INFORMATION
  Report Type: 
  Country: None (occurrence: None)
  Receive Date: 20040102
  Receipt Date: 20031107
  Transmission Date: 20041129
  Serious: Yes (Other)
  Sender: FDA-Public Use
  Company Number: USA031151760

PATIENT
  Age: 38 Year
  Sex: Female
  Weight: 89 kg

DRUGS (2)
  1. HUMULIN N [Suspect]
     Indication: DIABETES MELLITUS
     Dosage: 55 U DAY
     Dates: start: 19880101
  2. GLICOTROL (GLIPIZIDE) [Concomitant]

REACTIONS (3)
  - BLINDNESS UNILATERAL [None]
  - GLAUCOMA [None]
  - VISUAL ACUITY REDUCED [None]
